FAERS Safety Report 6406938-8 (Version None)
Quarter: 2009Q4

REPORT INFORMATION
  Report Type: 
  Country: None (occurrence: None)
  Receive Date: 20091020
  Receipt Date: 20090930
  Transmission Date: 20100525
  Serious: Yes (Life-Threatening)
  Sender: FDA-Public Use
  Company Number: RU-ASTRAZENECA-2009SE06426

PATIENT
  Sex: Female
  Weight: 98 kg

DRUGS (6)
  1. FASLODEX [Suspect]
     Indication: BREAST CANCER
     Dosage: 250 MG/5ML ONE PER MONTH
     Route: 030
     Dates: start: 20070704, end: 20070704
  2. FASLODEX [Suspect]
     Indication: METASTASES TO BONE
     Dosage: 250 MG/5ML ONE PER MONTH
     Route: 030
     Dates: start: 20070704, end: 20070704
  3. FASLODEX [Suspect]
     Dosage: 250 MG/5ML ONE PER MONTH
     Route: 030
  4. FASLODEX [Suspect]
     Dosage: 250 MG/5ML ONE PER MONTH
     Route: 030
  5. ZOMETA [Concomitant]
     Indication: METASTASES TO BONE
     Route: 042
     Dates: start: 20070101
  6. DIABETON [Concomitant]
     Indication: DIABETES MELLITUS
     Route: 048
     Dates: end: 20090501

REACTIONS (1)
  - ANAPHYLACTIC REACTION [None]
